FAERS Safety Report 24560141 (Version 1)
Quarter: 2024Q4

REPORT INFORMATION
  Report Type: Spontaneous
  Country: CA (occurrence: CA)
  Receive Date: 20241029
  Receipt Date: 20241029
  Transmission Date: 20250114
  Serious: Yes (Hospitalization, Other)
  Sender: CELLTRION
  Company Number: CA-PFIZER INC-202400256704

PATIENT

DRUGS (7)
  1. INFLECTRA [Suspect]
     Active Substance: INFLIXIMAB-DYYB
     Indication: Ankylosing spondylitis
     Dosage: 400 MG, EVERY 6 WEEK
     Route: 042
     Dates: start: 20210607, end: 20240110
  2. INFLECTRA [Suspect]
     Active Substance: INFLIXIMAB-DYYB
     Dosage: 400 MG, Q 0, 2, 6, THEN EVERY 6 WEEKS
     Route: 042
     Dates: start: 20240403
  3. INFLECTRA [Suspect]
     Active Substance: INFLIXIMAB-DYYB
     Dosage: 400 MG, Q 0, 2, 6, THEN EVERY 6 WEEKS
     Route: 042
     Dates: start: 20240807, end: 2024
  4. INFLECTRA [Suspect]
     Active Substance: INFLIXIMAB-DYYB
     Dosage: 400 MG,10 WEEKS AND 3 DAYS (PRESCRIBED TREATMENTS ARE EVERY 6 WEEKS) (Q 0, 2, 6, THEN EVERY 6 WEEKS)
     Route: 042
     Dates: start: 20241019
  5. ETANERCEPT [Concomitant]
     Active Substance: ETANERCEPT
     Dosage: 1 DF(DOSAGE INFO AND DRUG STATUS NOT AVAILABLE   )
     Route: 065
  6. METHOTREXATE [Concomitant]
     Active Substance: METHOTREXATE
     Dosage: 25 MG, WEEKLY
     Route: 058
  7. IMMUNE GLOBULIN [Concomitant]
     Dosage: 1 DF, EVERY 4 WEEK
     Route: 042

REACTIONS (4)
  - Blood potassium decreased [Recovered/Resolved]
  - Pneumonia [Unknown]
  - COVID-19 [Unknown]
  - Malabsorption [Unknown]

NARRATIVE: CASE EVENT DATE: 20240101
